FAERS Safety Report 10184475 (Version 1)
Quarter: 2014Q2

REPORT INFORMATION
  Report Type: Spontaneous
  Country: US (occurrence: US)
  Receive Date: 20140521
  Receipt Date: 20140521
  Transmission Date: 20141212
  Serious: Yes (Hospitalization)
  Sender: FDA-Public Use
  Company Number: US-BIOGENIDEC-2014BI046675

PATIENT
  Age: 65 Year
  Sex: Female

DRUGS (4)
  1. AVONEX [Suspect]
     Indication: MULTIPLE SCLEROSIS
     Route: 030
     Dates: start: 20120416
  2. LEVOTHYROXINE SODIUM [Concomitant]
  3. MORPHINE SULFATE CR [Concomitant]
  4. METHYLPHENIDATE HCL [Concomitant]

REACTIONS (2)
  - Altered state of consciousness [Unknown]
  - Multiple sclerosis relapse [Unknown]
